FAERS Safety Report 9011845 (Version 2)
Quarter: 2013Q1

REPORT INFORMATION
  Report Type: Spontaneous
  Country: DE (occurrence: DE)
  Receive Date: 20130112
  Receipt Date: 20130201
  Transmission Date: 20140127
  Serious: Yes (Other)
  Sender: FDA-Public Use
  Company Number: DE-US-EMD SERONO, INC.-7186868

PATIENT
  Sex: Female
  Weight: 76 kg

DRUGS (2)
  1. REBIF [Suspect]
     Indication: MULTIPLE SCLEROSIS
     Route: 058
     Dates: start: 20100915
  2. EUTHYROX [Concomitant]
     Indication: HORMONE REPLACEMENT THERAPY
     Route: 048

REACTIONS (5)
  - Lip disorder [Unknown]
  - Bacterial infection [Recovering/Resolving]
  - Lip injury [Recovering/Resolving]
  - Lip pain [Recovering/Resolving]
  - Lip swelling [Not Recovered/Not Resolved]
